FAERS Safety Report 25712400 (Version 3)
Quarter: 2025Q3

REPORT INFORMATION
  Report Type: Spontaneous
  Country: JP (occurrence: JP)
  Receive Date: 20250821
  Receipt Date: 20250826
  Transmission Date: 20251021
  Serious: Yes (Hospitalization)
  Sender: ALEXION PHARMACEUTICALS
  Company Number: JP-AstraZeneca-CH-00934155A

PATIENT
  Age: 71 Year
  Sex: Female

DRUGS (3)
  1. TRUQAP [Suspect]
     Active Substance: CAPIVASERTIB
     Indication: Breast cancer recurrent
  2. FULVESTRANT [Suspect]
     Active Substance: FULVESTRANT
     Route: 065
  3. FULVESTRANT [Suspect]
     Active Substance: FULVESTRANT

REACTIONS (2)
  - Stevens-Johnson syndrome [Recovered/Resolved]
  - Erythema [Recovering/Resolving]

NARRATIVE: CASE EVENT DATE: 20250812
